FAERS Safety Report 26189174 (Version 1)
Quarter: 2025Q4

REPORT INFORMATION
  Report Type: Spontaneous
  Country: CA (occurrence: CA)
  Receive Date: 20251223
  Receipt Date: 20251223
  Transmission Date: 20260118
  Serious: Yes (Hospitalization, Other)
  Sender: AUROBINDO
  Company Number: CA-AUROBINDO-AUR-APL-2025-066193

PATIENT
  Age: 33 Year
  Weight: 42 kg

DRUGS (1)
  1. VANCOMYCIN [Suspect]
     Active Substance: VANCOMYCIN
     Indication: Product used for unknown indication
     Dosage: 1500 MILLIGRAM

REACTIONS (3)
  - Drug reaction with eosinophilia and systemic symptoms [Unknown]
  - Liver function test increased [Unknown]
  - Rash [Unknown]
